FAERS Safety Report 21521474 (Version 2)
Quarter: 2022Q4

REPORT INFORMATION
  Report Type: Spontaneous
  Country: US (occurrence: US)
  Receive Date: 20221028
  Receipt Date: 20221101
  Transmission Date: 20230113
  Serious: No
  Sender: FDA-Public Use
  Company Number: US-SANOFI-01324763

PATIENT
  Sex: Female

DRUGS (1)
  1. LANTUS [Suspect]
     Active Substance: INSULIN GLARGINE
     Dosage: 20 IU, QD
     Dates: start: 20220201

REACTIONS (9)
  - Spinal stenosis [Unknown]
  - Rotator cuff syndrome [Unknown]
  - Neoplasm [Unknown]
  - Rotator cuff syndrome [Unknown]
  - Benign bone neoplasm [Unknown]
  - Bursitis [Unknown]
  - Blood glucose increased [Unknown]
  - Incorrect dose administered by product [Unknown]
  - Device issue [Unknown]
